APPROVED DRUG PRODUCT: COLCHICINE
Active Ingredient: COLCHICINE
Strength: 0.6MG
Dosage Form/Route: TABLET;ORAL
Application: A208993 | Product #001 | TE Code: AB
Applicant: HETERO LABS LTD UNIT V
Approved: Aug 13, 2021 | RLD: No | RS: No | Type: RX